FAERS Safety Report 9882167 (Version 1)
Quarter: 2014Q1

REPORT INFORMATION
  Report Type: Spontaneous
  Country: EG (occurrence: EG)
  Receive Date: 20140207
  Receipt Date: 20140207
  Transmission Date: 20141002
  Serious: Yes (Life-Threatening)
  Sender: FDA-Public Use
  Company Number: EG-ACTAVIS-2014-01767

PATIENT
  Sex: Female

DRUGS (3)
  1. VINORELBINE ACTAVIS [Suspect]
     Indication: BREAST CANCER
     Dosage: 50 MG, 1/WEEK
     Route: 042
  2. VINORELBINE ACTAVIS [Suspect]
     Indication: LUNG NEOPLASM MALIGNANT
     Dosage: 50 MG, 1/WEEK
     Route: 042
  3. 5-FLUOROURACIL                     /00098801/ [Concomitant]
     Indication: PRODUCT USED FOR UNKNOWN INDICATION
     Dosage: UNK
     Route: 065

REACTIONS (6)
  - Thrombophlebitis [Not Recovered/Not Resolved]
  - Ulcer [Not Recovered/Not Resolved]
  - Rash [Not Recovered/Not Resolved]
  - Flushing [Not Recovered/Not Resolved]
  - Skin burning sensation [Not Recovered/Not Resolved]
  - Hypersensitivity [Not Recovered/Not Resolved]
